FAERS Safety Report 12553382 (Version 1)
Quarter: 2016Q3

REPORT INFORMATION
  Report Type: Spontaneous
  Country: US (occurrence: US)
  Receive Date: 20160713
  Receipt Date: 20160713
  Transmission Date: 20161109
  Serious: No
  Sender: FDA-Public Use
  Company Number: US-BAYER-2016-135851

PATIENT
  Age: 29 Year
  Sex: Female

DRUGS (2)
  1. MIRENA [Suspect]
     Active Substance: LEVONORGESTREL
     Indication: CONTRACEPTION
     Dosage: 20 MCG/24HR, CONT
     Route: 015
     Dates: end: 20160623
  2. MIRENA [Suspect]
     Active Substance: LEVONORGESTREL
     Indication: CONTRACEPTION
     Dosage: 20 MCG/24HR, CONT
     Route: 015
     Dates: start: 20160623

REACTIONS (9)
  - Vaginal haemorrhage [None]
  - Adverse event [None]
  - Bacterial vaginosis [None]
  - Device use issue [None]
  - Panic attack [None]
  - Rash [None]
  - Generalised anxiety disorder [None]
  - Impaired work ability [None]
  - Quality of life decreased [None]

NARRATIVE: CASE EVENT DATE: 2016
